FAERS Safety Report 12235972 (Version 1)
Quarter: 2016Q2

REPORT INFORMATION
  Report Type: Spontaneous
  Country: US (occurrence: US)
  Receive Date: 20160404
  Receipt Date: 20160404
  Transmission Date: 20160815
  Serious: Yes (Death)
  Sender: FDA-Public Use
  Company Number: US-TAIHO ONCOLOGY INC-EU-2016-00598

PATIENT
  Sex: Male

DRUGS (31)
  1. STIVARGA [Concomitant]
     Active Substance: REGORAFENIB
     Dosage: NI
  2. DOCUSATE SODIUM. [Concomitant]
     Active Substance: DOCUSATE SODIUM
     Dosage: NI
  3. FINASTERIDE. [Concomitant]
     Active Substance: FINASTERIDE
     Dosage: NI
  4. PROMETHEGAN [Concomitant]
     Active Substance: PROMETHAZINE HYDROCHLORIDE
     Dosage: NI
  5. ASACOL [Concomitant]
     Active Substance: MESALAMINE
     Dosage: NI
  6. SENNA [Concomitant]
     Active Substance: SENNA LEAF\SENNOSIDES\SENNOSIDES A AND B
     Dosage: NI
  7. SANCUSO [Concomitant]
     Active Substance: GRANISETRON
     Dosage: NI
  8. ENOXAPARIN [Concomitant]
     Active Substance: ENOXAPARIN
     Dosage: NI
  9. OXYCODONE [Concomitant]
     Active Substance: OXYCODONE
     Dosage: NI
  10. XARELTO [Concomitant]
     Active Substance: RIVAROXABAN
     Dosage: NI
  11. MORPHINE [Concomitant]
     Active Substance: MORPHINE
     Dosage: NI
  12. PARACETAMOL/HYDROCODONE BITARTRATE [Concomitant]
     Dosage: NI
  13. FENTANYL. [Concomitant]
     Active Substance: FENTANYL
     Dosage: NI
  14. ZOLPIDEM [Concomitant]
     Active Substance: ZOLPIDEM\ZOLPIDEM TARTRATE
     Dosage: NI
  15. PYRIDOXINE HYDROCHLORIDE. [Concomitant]
     Active Substance: PYRIDOXINE HYDROCHLORIDE
     Dosage: NI
  16. PROCHLORPERAZINE. [Concomitant]
     Active Substance: PROCHLORPERAZINE
     Dosage: NI
  17. METOPROLOL. [Concomitant]
     Active Substance: METOPROLOL
     Dosage: NI
  18. LONSURF [Suspect]
     Active Substance: TIPIRACIL HYDROCHLORIDE\TRIFLURIDINE
     Indication: COLON CANCER
     Route: 048
     Dates: start: 20151224
  19. LORAZEPAM. [Concomitant]
     Active Substance: LORAZEPAM
     Dosage: NI
  20. TAMSULOSIN [Concomitant]
     Active Substance: TAMSULOSIN
     Dosage: NI
  21. TRAMADOL. [Concomitant]
     Active Substance: TRAMADOL
     Dosage: NI
  22. DEXAMETHASONE. [Concomitant]
     Active Substance: DEXAMETHASONE
     Dosage: NI
  23. LEVETIRACETAM. [Concomitant]
     Active Substance: LEVETIRACETAM
     Dosage: NI
  24. PANTOPRAZOLE [Concomitant]
     Active Substance: PANTOPRAZOLE SODIUM
     Dosage: NI
  25. ACETYLSALICYLIC ACID [Concomitant]
     Active Substance: ASPIRIN
     Dosage: NI
  26. DICYCLOVERINE [Concomitant]
     Dosage: NI
  27. LIDOCAINE HYDROCHLORIDE. [Concomitant]
     Active Substance: LIDOCAINE HYDROCHLORIDE
     Dosage: NI
  28. ONDANSETRON [Concomitant]
     Active Substance: ONDANSETRON
     Dosage: NI
  29. DIPHENHYDRAMINE. [Concomitant]
     Active Substance: DIPHENHYDRAMINE
     Dosage: NI
  30. TERAZOSIN [Concomitant]
     Active Substance: TERAZOSIN\TERAZOSIN HYDROCHLORIDE
     Dosage: NI
  31. ANUCORT [Concomitant]
     Dosage: NI

REACTIONS (1)
  - Death [Fatal]

NARRATIVE: CASE EVENT DATE: 2016
